FAERS Safety Report 12263252 (Version 1)
Quarter: 2016Q2

REPORT INFORMATION
  Report Type: Spontaneous
  Country: US (occurrence: None)
  Receive Date: 20160412
  Receipt Date: 20160412
  Transmission Date: 20160815
  Serious: Yes (Other)
  Sender: FDA-Public Use
  Company Number: None

PATIENT
  Age: 73 Year
  Sex: Female
  Weight: 61.69 kg

DRUGS (13)
  1. LEVAQUIN [Suspect]
     Active Substance: LEVOFLOXACIN
     Indication: SINUSITIS
     Dosage: 7 TABLET(S) IN THE MORNING TAKEN BY MOUTH
     Route: 048
     Dates: start: 20160411, end: 20160411
  2. KLONOPIN, CLONAZEPAM [Concomitant]
  3. NAMENDA (MEMANTINE HCL) [Concomitant]
  4. LEXAPRO, ESCITALOPRAM [Concomitant]
  5. PROPRANOLOL [Concomitant]
     Active Substance: PROPRANOLOL\PROPRANOLOL HYDROCHLORIDE
  6. VITAMIN B12 [Concomitant]
     Active Substance: CYANOCOBALAMIN
  7. VITAMIN D [Concomitant]
     Active Substance: CHOLECALCIFEROL
  8. SINEMET [Concomitant]
     Active Substance: CARBIDOPA\LEVODOPA
  9. FENOFIBRATE (TRICOR) [Concomitant]
  10. SUPPOSITORY [Concomitant]
  11. MIRALAX [Concomitant]
     Active Substance: POLYETHYLENE GLYCOL 3350
  12. SANCTURA, TROSPIUM [Concomitant]
  13. OCUVITE OTC [Concomitant]

REACTIONS (6)
  - Anxiety [None]
  - Hallucination [None]
  - Confusional state [None]
  - Disorientation [None]
  - Speech disorder [None]
  - Memory impairment [None]

NARRATIVE: CASE EVENT DATE: 20160411
